FAERS Safety Report 7051878-7 (Version None)
Quarter: 2010Q4

REPORT INFORMATION
  Report Type: 
  Country: None (occurrence: None)
  Receive Date: 20101019
  Receipt Date: 20101012
  Transmission Date: 20110411
  Serious: Yes (Hospitalization)
  Sender: FDA-Public Use
  Company Number: GXKR2010IT11580

PATIENT
  Sex: Female

DRUGS (4)
  1. LAMOTRIGINE [Suspect]
     Dosage: UNK
     Route: 065
  2. CLARITHROMYCIN [Suspect]
     Dosage: UNK
     Route: 065
  3. FLUOXETINE [Suspect]
     Dosage: UNK
     Route: 065
  4. DRUG THERAPY NOS [Suspect]
     Route: 065

REACTIONS (2)
  - HEPATITIS ACUTE [None]
  - MONONUCLEOSIS SYNDROME [None]
